FAERS Safety Report 9900919 (Version 1)
Quarter: 2014Q1

REPORT INFORMATION
  Report Type: Spontaneous
  Country: US (occurrence: US)
  Receive Date: 20140217
  Receipt Date: 20140217
  Transmission Date: 20141002
  Serious: No
  Sender: FDA-Public Use
  Company Number: US-ABBVIE-13P-163-1162728-00

PATIENT
  Age: 66 Year
  Sex: 0
  Weight: 89.89 kg

DRUGS (2)
  1. SIMCOR 500/20 [Suspect]
     Indication: BLOOD CHOLESTEROL
     Dosage: 500/20
     Route: 048
  2. ENALAPRIL [Concomitant]
     Indication: HYPERTENSION

REACTIONS (1)
  - Myalgia [Not Recovered/Not Resolved]
